FAERS Safety Report 13731732 (Version 5)
Quarter: 2018Q2

REPORT INFORMATION
  Report Type: Report from Study
  Country: US (occurrence: US)
  Receive Date: 20170707
  Receipt Date: 20180415
  Transmission Date: 20180711
  Serious: Yes (Hospitalization, Other)
  Sender: FDA-Public Use
  Company Number: US-TEVA-783000USA

PATIENT
  Age: 4 Year
  Sex: Male
  Weight: 18.5 kg

DRUGS (13)
  1. VINCRISTINE [Suspect]
     Active Substance: VINCRISTINE
     Dosage: SINGLE
     Route: 042
     Dates: start: 20170514, end: 20170524
  2. RUXOLITINIB (INCB018424) [Suspect]
     Active Substance: RUXOLITINIB
     Indication: B PRECURSOR TYPE ACUTE LEUKAEMIA
     Dosage: 60 MILLIGRAM DAILY;
     Route: 048
     Dates: start: 20170412
  3. THIOGUANINE [Suspect]
     Active Substance: THIOGUANINE
     Indication: ACUTE LYMPHOCYTIC LEUKAEMIA
     Dosage: WED-SUN
     Route: 048
     Dates: start: 20170510
  4. THIOGUANINE [Suspect]
     Active Substance: THIOGUANINE
     Dosage: MON-TUE
     Route: 048
     Dates: start: 20170510
  5. PEGASPARGASE [Suspect]
     Active Substance: PEGASPARGASE
     Indication: ACUTE LYMPHOCYTIC LEUKAEMIA
     Dosage: DAY 4, IU/M2
     Route: 042
     Dates: start: 20170415
  6. DEXAMETHASONE. [Suspect]
     Active Substance: DEXAMETHASONE
     Indication: ACUTE LYMPHOCYTIC LEUKAEMIA
     Dosage: 7.6 MILLIGRAM DAILY;
     Route: 048
     Dates: start: 20170412
  7. METHOTREXATE. [Suspect]
     Active Substance: METHOTREXATE
     Indication: ACUTE LYMPHOCYTIC LEUKAEMIA
     Route: 037
     Dates: start: 20170412
  8. CYTARABINE HYDROCHLORIDE [Suspect]
     Active Substance: CYTARABINE HYDROCHLORIDE
     Indication: ACUTE LYMPHOCYTIC LEUKAEMIA
     Dosage: 56 MILLIGRAM DAILY;
     Route: 058
     Dates: start: 20170510
  9. PEGASPARGASE [Suspect]
     Active Substance: PEGASPARGASE
     Dosage: SINGLE, IU/M2
     Route: 042
     Dates: start: 20170524, end: 20170524
  10. VINCRISTINE [Suspect]
     Active Substance: VINCRISTINE
     Indication: ACUTE LYMPHOCYTIC LEUKAEMIA
     Dosage: DAYS 1, 8, 15
     Route: 037
     Dates: start: 20170412
  11. DEXAMETHASONE. [Suspect]
     Active Substance: DEXAMETHASONE
     Dosage: 8 MILLIGRAM DAILY;
     Route: 048
     Dates: start: 20170426
  12. DOXORUBICIN [Suspect]
     Active Substance: DOXORUBICIN
     Indication: ACUTE LYMPHOCYTIC LEUKAEMIA
     Route: 011
     Dates: start: 20170412
  13. CYCLOPHOSPHAMIDE. [Suspect]
     Active Substance: CYCLOPHOSPHAMIDE
     Indication: ACUTE LYMPHOCYTIC LEUKAEMIA
     Dosage: SINGLE
     Route: 042
     Dates: start: 20170510, end: 20170510

REACTIONS (4)
  - Mucosal inflammation [Recovered/Resolved]
  - Sepsis [Recovered/Resolved]
  - Vomiting [Recovered/Resolved]
  - Dehydration [Recovered/Resolved]

NARRATIVE: CASE EVENT DATE: 20170520
